FAERS Safety Report 10268760 (Version 1)
Quarter: 2014Q2

REPORT INFORMATION
  Report Type: Spontaneous
  Country: US (occurrence: US)
  Receive Date: 20140630
  Receipt Date: 20140630
  Transmission Date: 20141212
  Serious: Yes (Death)
  Sender: FDA-Public Use
  Company Number: US-INCYTE CORPORATION-2014IN001819

PATIENT
  Age: 86 Year
  Sex: Female

DRUGS (1)
  1. JAKAFI [Suspect]
     Indication: THROMBOCYTOSIS
     Dosage: 20 MG, BID
     Route: 048
     Dates: start: 20140411, end: 20140620

REACTIONS (1)
  - Pulmonary embolism [Fatal]
